FAERS Safety Report 10229027 (Version 1)
Quarter: 2014Q2

REPORT INFORMATION
  Report Type: Spontaneous
  Country: CN (occurrence: CN)
  Receive Date: 20140610
  Receipt Date: 20140610
  Transmission Date: 20141212
  Serious: Yes (Hospitalization, Other)
  Sender: FDA-Public Use
  Company Number: CN-GILEAD-2014-0104864

PATIENT
  Age: 61 Year
  Sex: Female

DRUGS (4)
  1. HEPSERA [Suspect]
     Indication: HEPATITIS B
     Dosage: 10MG PER DAY
     Route: 048
     Dates: start: 2007, end: 20131208
  2. HEPSERA [Suspect]
     Indication: VIRAL INFECTION
  3. ENTECAVIR [Concomitant]
     Indication: HEPATITIS B
     Dosage: UNK
     Dates: start: 201312
  4. ENTECAVIR [Concomitant]
     Indication: VIRAL INFECTION

REACTIONS (5)
  - Osteomalacia [Not Recovered/Not Resolved]
  - Muscle rigidity [Not Recovered/Not Resolved]
  - Muscle spasms [Not Recovered/Not Resolved]
  - Hypophosphataemia [Not Recovered/Not Resolved]
  - Hypophosphataemia [Not Recovered/Not Resolved]
